FAERS Safety Report 23077834 (Version 1)
Quarter: 2023Q4

REPORT INFORMATION
  Report Type: Spontaneous
  Country: US (occurrence: US)
  Receive Date: 20231018
  Receipt Date: 20231018
  Transmission Date: 20240110
  Serious: Yes (Other)
  Sender: FDA-Public Use
  Company Number: US-Shilpa Medicare Limited-SML-US-2023-01435

PATIENT
  Age: 57 Year
  Sex: Male

DRUGS (4)
  1. GEMCITABINE [Suspect]
     Active Substance: GEMCITABINE
     Indication: Bladder transitional cell carcinoma
     Route: 043
  2. BCG VACCINE [Suspect]
     Active Substance: BCG VACCINE
     Indication: Bladder transitional cell carcinoma
     Route: 043
  3. CARBOPLATIN [Suspect]
     Active Substance: CARBOPLATIN
     Indication: Bladder transitional cell carcinoma
     Route: 043
  4. AVELUMAB [Suspect]
     Active Substance: AVELUMAB
     Indication: Bladder transitional cell carcinoma
     Route: 043

REACTIONS (2)
  - Treatment failure [Unknown]
  - Drug ineffective [Unknown]
